FAERS Safety Report 6890854-1 (Version None)
Quarter: 2010Q3

REPORT INFORMATION
  Report Type: 
  Country: None (occurrence: None)
  Receive Date: 20100731
  Receipt Date: 20090402
  Transmission Date: 20110219
  Serious: No
  Sender: FDA-Public Use
  Company Number: US-PFIZER INC-2008157911

PATIENT
  Sex: Female
  Weight: 54.422 kg

DRUGS (1)
  1. LIPITOR [Suspect]
     Indication: BLOOD CHOLESTEROL INCREASED
     Dates: end: 20080101

REACTIONS (3)
  - BONE PAIN [None]
  - INFLAMMATION [None]
  - INSOMNIA [None]
